FAERS Safety Report 6673708-5 (Version None)
Quarter: 2010Q1

REPORT INFORMATION
  Report Type: 
  Country: None (occurrence: None)
  Receive Date: 20100329
  Receipt Date: 20090825
  Transmission Date: 20100710
  Serious: Yes (Other)
  Sender: FDA-Public Use
  Company Number: 2009237782

PATIENT
  Age: 46 Year
  Sex: Male
  Weight: 68 kg

DRUGS (7)
  1. GEODON [Suspect]
     Indication: DEPRESSION
     Dosage: 60 MG, 1X/DAY
     Dates: start: 20090601
  2. CYMBALTA [Concomitant]
  3. INSULIN (INSULIN) [Concomitant]
  4. CADUET [Concomitant]
  5. LYRICA [Concomitant]
  6. KLONOPIN [Concomitant]
  7. DARVOCET [Concomitant]

REACTIONS (5)
  - CONFUSIONAL STATE [None]
  - DIZZINESS [None]
  - DYSSTASIA [None]
  - SOMNOLENCE [None]
  - SYNCOPE [None]
